FAERS Safety Report 9731835 (Version 2)
Quarter: 2013Q4

REPORT INFORMATION
  Report Type: Spontaneous
  Country: IT (occurrence: IT)
  Receive Date: 20131205
  Receipt Date: 20131209
  Transmission Date: 20140711
  Serious: Yes (Other)
  Sender: FDA-Public Use
  Company Number: IT-ROCHE-1313101

PATIENT
  Age: 56 Year
  Sex: Female

DRUGS (9)
  1. CELLCEPT [Suspect]
     Indication: SYSTEMIC SCLEROSIS PULMONARY
     Route: 048
     Dates: start: 20130404, end: 20130606
  2. PANTOPRAZOL [Concomitant]
     Indication: GASTROINTESTINAL ULCER
  3. AMLODIPINA [Concomitant]
     Indication: HYPERTENSION
  4. DOMPERIDONE [Concomitant]
     Indication: PROPHYLAXIS OF NAUSEA AND VOMITING
  5. OXYGEN [Concomitant]
     Indication: SYSTEMIC SCLEROSIS PULMONARY
  6. LASIX [Concomitant]
     Indication: HYPERTENSION
  7. DIBASE [Concomitant]
     Indication: OSTEOPOROSIS PROPHYLAXIS
  8. FLUIMUCIL (ITALY) [Concomitant]
     Indication: SYSTEMIC SCLEROSIS PULMONARY
  9. CARDIOASPIRIN [Concomitant]
     Indication: PLATELET AGGREGATION INHIBITION

REACTIONS (1)
  - Enterocolitis haemorrhagic [Recovered/Resolved]
